FAERS Safety Report 23702593 (Version 1)
Quarter: 2024Q2

REPORT INFORMATION
  Report Type: Spontaneous
  Country: CH (occurrence: CH)
  Receive Date: 20240403
  Receipt Date: 20240403
  Transmission Date: 20240716
  Serious: Yes (Hospitalization, Other)
  Sender: FDA-Public Use
  Company Number: None

PATIENT
  Age: 77 Year
  Sex: Male
  Weight: 90 kg

DRUGS (18)
  1. VENETOCLAX [Suspect]
     Active Substance: VENETOCLAX
     Indication: Acute myeloid leukaemia
     Route: 048
     Dates: start: 20231110, end: 20231112
  2. VENETOCLAX [Suspect]
     Active Substance: VENETOCLAX
     Indication: Acute myeloid leukaemia
     Route: 048
     Dates: start: 20231114, end: 20231122
  3. VENETOCLAX [Suspect]
     Active Substance: VENETOCLAX
     Indication: Acute myeloid leukaemia
     Route: 048
     Dates: start: 20231113, end: 20231113
  4. VALTREX [Concomitant]
     Active Substance: VALACYCLOVIR HYDROCHLORIDE
     Indication: Infection prophylaxis
     Route: 048
     Dates: start: 20231110
  5. AZACITIDINE [Suspect]
     Active Substance: AZACITIDINE
     Indication: Acute myeloid leukaemia
     Dosage: TIME INTERVAL: CYCLICAL: CYCLICAL
     Route: 058
     Dates: start: 20231110, end: 20231115
  6. PANTOPRAZOLE SODIUM [Concomitant]
     Active Substance: PANTOPRAZOLE SODIUM
     Indication: Product used for unknown indication
     Dosage: 20 MILLIGRAM
     Route: 048
  7. ROCEPHIN [Concomitant]
     Active Substance: CEFTRIAXONE SODIUM
     Indication: Urinary tract infection
     Route: 041
     Dates: start: 20231107, end: 20231109
  8. BISOPROLOL [Concomitant]
     Active Substance: BISOPROLOL\BISOPROLOL FUMARATE
     Indication: Atrial fibrillation
     Dosage: 1.25 MILLIGRAM
     Route: 048
  9. TAMSULOSIN [Concomitant]
     Active Substance: TAMSULOSIN
     Indication: Product used for unknown indication
     Route: 048
  10. ALLOPURINOL [Concomitant]
     Active Substance: ALLOPURINOL
     Indication: Acute myeloid leukaemia
     Dosage: MORGENS
     Route: 048
     Dates: start: 20231110
  11. ELIQUIS [Concomitant]
     Active Substance: APIXABAN
     Indication: Atrial fibrillation
     Route: 048
     Dates: end: 20231107
  12. ELIQUIS [Concomitant]
     Active Substance: APIXABAN
     Indication: Atrial fibrillation
     Dosage: 2.5 MILLIGRAM
     Route: 048
     Dates: end: 20231107
  13. HUMAN RED BLOOD CELL [Concomitant]
     Active Substance: HUMAN RED BLOOD CELL
     Indication: Acute myeloid leukaemia
  14. PLATELETS [Concomitant]
     Active Substance: HUMAN PLATELET, ALLOGENIC
     Indication: Acute myeloid leukaemia
  15. PIPERACILLIN SODIUM\TAZOBACTAM SODIUM [Suspect]
     Active Substance: PIPERACILLIN SODIUM\TAZOBACTAM SODIUM
     Indication: Urinary tract infection
     Route: 041
     Dates: start: 20231109, end: 20231117
  16. LASIX [Concomitant]
     Active Substance: FUROSEMIDE
     Indication: Product used for unknown indication
     Dates: start: 2023
  17. Piperacillin sodium; Tazobactam [Concomitant]
     Indication: Urinary tract infection
     Route: 041
     Dates: start: 20231109, end: 20231117
  18. TAMSULOSIN [Concomitant]
     Active Substance: TAMSULOSIN
     Indication: Product used for unknown indication
     Dosage: 0.4 MILLIGRAM
     Route: 048

REACTIONS (4)
  - Cardiac failure [Recovered/Resolved]
  - Atrial fibrillation [Recovered/Resolved]
  - Weight decreased [Unknown]
  - Renal function test abnormal [Unknown]

NARRATIVE: CASE EVENT DATE: 20230101
